FAERS Safety Report 4864536-1 (Version None)
Quarter: 2005Q4

REPORT INFORMATION
  Report Type: 
  Country: None (occurrence: None)
  Receive Date: 20051222
  Receipt Date: 19950605
  Transmission Date: 20060501
  Serious: Yes (Death, Hospitalization)
  Sender: FDA-Public Use
  Company Number: IT-NOVOPROD-100731

PATIENT
  Age: 6 Year
  Sex: Male

DRUGS (1)
  1. NORDITROPIN [Suspect]
     Indication: GROWTH HORMONE DEFICIENCY
     Dosage: 4 IU, QD
     Dates: start: 19950201, end: 19950501

REACTIONS (3)
  - APNOEA [None]
  - BRONCHOPNEUMONIA [None]
  - TONSILLAR HYPERTROPHY [None]
